FAERS Safety Report 13461764 (Version 1)
Quarter: 2017Q2

REPORT INFORMATION
  Report Type: Spontaneous
  Country: US (occurrence: US)
  Receive Date: 20170418
  Receipt Date: 20170418
  Transmission Date: 20170830
  Serious: No
  Sender: FDA-Public Use
  Company Number: None

PATIENT
  Age: 70 Year
  Sex: Female

DRUGS (1)
  1. AMPYRA [Suspect]
     Active Substance: DALFAMPRIDINE
     Indication: MULTIPLE SCLEROSIS
     Route: 048
     Dates: start: 20100630

REACTIONS (16)
  - Urinary tract infection [None]
  - Enterococcus test positive [None]
  - Red blood cells urine positive [None]
  - Haemoglobin decreased [None]
  - Haemoglobin urine present [None]
  - Glomerular filtration rate decreased [None]
  - White blood cells urine positive [None]
  - Blood glucose increased [None]
  - Glycosylated haemoglobin increased [None]
  - Culture urine positive [None]
  - Urine leukocyte esterase positive [None]
  - Urinary sediment present [None]
  - Urine abnormality [None]
  - Bacterial test positive [None]
  - Laboratory test abnormal [None]
  - Pseudomonas test positive [None]

NARRATIVE: CASE EVENT DATE: 20170410
